FAERS Safety Report 10976731 (Version 1)
Quarter: 2015Q1

REPORT INFORMATION
  Report Type: Spontaneous
  Country: US (occurrence: None)
  Receive Date: 20150226
  Receipt Date: 20150226
  Transmission Date: 20150721
  Serious: Yes (Other)
  Sender: FDA-Public Use
  Company Number: 2013TUS001925

PATIENT
  Age: 71 Year
  Sex: Male

DRUGS (7)
  1. SYNTHROID [Concomitant]
     Active Substance: LEVOTHYROXINE SODIUM
  2. METFORMIN [Concomitant]
     Active Substance: METFORMIN HYDROCHLORIDE
  3. SIMVASTATIN. [Concomitant]
     Active Substance: SIMVASTATIN
  4. PRANDIN /00882701/ (DEFLAZACORT) [Concomitant]
  5. BYETTA (EXENATIDE) [Concomitant]
  6. DIOVAN/HCTZ (HYDROCHLOROTHIAZIDE, VALSARTAN) [Concomitant]
  7. ACTOS [Suspect]
     Active Substance: PIOGLITAZONE HYDROCHLORIDE
     Indication: TYPE 2 DIABETES MELLITUS
     Route: 048
     Dates: start: 20080521

REACTIONS (3)
  - Bladder transitional cell carcinoma [None]
  - Pollakiuria [None]
  - Abdominal pain [None]

NARRATIVE: CASE EVENT DATE: 2013
